FAERS Safety Report 25243889 (Version 2)
Quarter: 2025Q2

REPORT INFORMATION
  Report Type: Spontaneous
  Country: GB (occurrence: GB)
  Receive Date: 20250428
  Receipt Date: 20250429
  Transmission Date: 20250716
  Serious: Yes (Death, Other)
  Sender: JOHNSON AND JOHNSON
  Company Number: GB-BAYER-2025A053632

PATIENT
  Age: 77 Year
  Sex: Female

DRUGS (18)
  1. VENTAVIS [Suspect]
     Active Substance: ILOPROST
     Indication: Pulmonary arterial hypertension
     Route: 055
     Dates: start: 20230706, end: 20230803
  2. VENTAVIS [Suspect]
     Active Substance: ILOPROST
     Dates: start: 20230803
  3. UPTRAVI [Suspect]
     Active Substance: SELEXIPAG
     Indication: Pulmonary arterial hypertension
     Dates: start: 20210323, end: 20210412
  4. UPTRAVI [Suspect]
     Active Substance: SELEXIPAG
     Dates: start: 20210412, end: 20210423
  5. UPTRAVI [Suspect]
     Active Substance: SELEXIPAG
     Dates: start: 20210423, end: 20210526
  6. UPTRAVI [Suspect]
     Active Substance: SELEXIPAG
     Dates: start: 20210528
  7. UPTRAVI [Suspect]
     Active Substance: SELEXIPAG
     Dates: start: 20210526, end: 20210528
  8. UPTRAVI [Suspect]
     Active Substance: SELEXIPAG
     Dates: start: 20210423, end: 20210526
  9. UPTRAVI [Suspect]
     Active Substance: SELEXIPAG
     Dates: start: 20210528, end: 20230707
  10. OPSUMIT [Suspect]
     Active Substance: MACITENTAN
     Indication: Pulmonary arterial hypertension
     Route: 065
     Dates: start: 20210319
  11. REVATIO [Suspect]
     Active Substance: SILDENAFIL CITRATE
     Indication: Pulmonary arterial hypertension
     Route: 048
     Dates: start: 20210310
  12. BUMETANIDE [Concomitant]
     Active Substance: BUMETANIDE
     Indication: Hypertension
     Route: 048
     Dates: start: 2009
  13. FERROUS SULFATE [Concomitant]
     Active Substance: FERROUS SULFATE
     Indication: Nutritional supplementation
     Route: 048
     Dates: start: 2009
  14. AMITRIPTYLINE [Concomitant]
     Active Substance: AMITRIPTYLINE
     Indication: Scleroderma
     Route: 048
     Dates: start: 2007
  15. ACETAMINOPHEN [Concomitant]
     Active Substance: ACETAMINOPHEN
     Indication: Product used for unknown indication
     Route: 048
     Dates: start: 2007
  16. OMEPRAZOLE [Concomitant]
     Active Substance: OMEPRAZOLE
     Indication: Gastrooesophageal reflux disease
     Route: 048
     Dates: start: 2001
  17. COVID-19 vaccine [Concomitant]
     Indication: Prophylaxis
     Route: 030
     Dates: start: 20210420, end: 20210420
  18. COVID-19 vaccine [Concomitant]
     Indication: COVID-19
     Route: 030
     Dates: start: 20210203, end: 20210203

REACTIONS (2)
  - Pulmonary arterial hypertension [Fatal]
  - Renal impairment [Unknown]

NARRATIVE: CASE EVENT DATE: 20250227
